FAERS Safety Report 5654801-2 (Version None)
Quarter: 2008Q1

REPORT INFORMATION
  Report Type: 
  Country: None (occurrence: None)
  Receive Date: 20080307
  Receipt Date: 20070718
  Transmission Date: 20080703
  Serious: No
  Sender: FDA-Public Use
  Company Number: A0665598A

PATIENT

DRUGS (2)
  1. REQUIP [Suspect]
     Indication: DRUG USE FOR UNKNOWN INDICATION
     Route: 065
  2. LEXAPRO [Suspect]
     Indication: DRUG USE FOR UNKNOWN INDICATION
     Route: 065

REACTIONS (2)
  - DEPRESSION [None]
  - DRUG INTERACTION [None]
